FAERS Safety Report 14272336 (Version 1)
Quarter: 2017Q4

REPORT INFORMATION
  Report Type: Spontaneous
  Country: US (occurrence: None)
  Receive Date: 20171211
  Receipt Date: 20171211
  Transmission Date: 20180321
  Serious: Yes (Other)
  Sender: FDA-Public Use
  Company Number: None

PATIENT
  Age: 83 Year
  Sex: Female

DRUGS (1)
  1. IBRANCE [Suspect]
     Active Substance: PALBOCICLIB
     Route: 048

REACTIONS (4)
  - Breast cancer metastatic [None]
  - Therapy cessation [None]
  - Anaemia [None]
  - Therapy change [None]

NARRATIVE: CASE EVENT DATE: 201709
